FAERS Safety Report 10214033 (Version 1)
Quarter: 2014Q2

REPORT INFORMATION
  Report Type: Spontaneous
  Country: FR (occurrence: FR)
  Receive Date: 20140603
  Receipt Date: 20140603
  Transmission Date: 20141212
  Serious: Yes (Other)
  Sender: FDA-Public Use
  Company Number: FR-MYLANLABS-2014S1012462

PATIENT
  Age: 49 Year
  Sex: Female

DRUGS (4)
  1. TACROLIMUS [Suspect]
     Indication: IMMUNOSUPPRESSANT DRUG THERAPY
     Route: 065
  2. AZATHIOPRINE [Suspect]
     Indication: IMMUNOSUPPRESSANT DRUG THERAPY
     Dosage: TAPERED AFTER 2ND RITUXIMAB INFUSION, STOPPED AFTER 6 MONTHS
     Route: 065
  3. RITUXIMAB [Suspect]
     Indication: HENOCH-SCHONLEIN PURPURA
     Dosage: TWO INFUSIONS AT 2 WEEKS APART
     Route: 041
  4. PREDNISONE [Concomitant]
     Indication: HENOCH-SCHONLEIN PURPURA
     Dosage: 1 MG/KG DAILY; AFTER ONE MONTH PROGRESSIVELY TAPERED AND
     Route: 048

REACTIONS (2)
  - Hypogammaglobulinaemia [Unknown]
  - Gastroenteritis norovirus [Recovered/Resolved]
